FAERS Safety Report 20713088 (Version 3)
Quarter: 2022Q3

REPORT INFORMATION
  Report Type: Report from Study
  Country: US (occurrence: US)
  Receive Date: 20220415
  Receipt Date: 20220719
  Transmission Date: 20221027
  Serious: Yes (Hospitalization, Other)
  Sender: FDA-Public Use
  Company Number: US-AMGEN-USASP2022062626

PATIENT
  Age: 61 Year
  Sex: Female

DRUGS (1)
  1. ENBREL [Suspect]
     Active Substance: ETANERCEPT
     Indication: Rheumatoid arthritis
     Dosage: 50 MILLIGRAM, QWK
     Route: 065
     Dates: end: 20220218

REACTIONS (13)
  - Volvulus [Unknown]
  - Oropharyngeal spasm [Unknown]
  - Colectomy [Unknown]
  - Appendicectomy [Unknown]
  - Cholecystectomy [Unknown]
  - Salpingectomy [Unknown]
  - Diverticulitis [Unknown]
  - Pain in jaw [Not Recovered/Not Resolved]
  - Bedridden [Not Recovered/Not Resolved]
  - Loss of personal independence in daily activities [Not Recovered/Not Resolved]
  - Hernia [Unknown]
  - Anxiety [Unknown]
  - Sinusitis [Unknown]

NARRATIVE: CASE EVENT DATE: 20190101
